FAERS Safety Report 6929945-5 (Version None)
Quarter: 2010Q3

REPORT INFORMATION
  Report Type: 
  Country: None (occurrence: None)
  Receive Date: 20100817
  Receipt Date: 20100817
  Transmission Date: 20110219
  Serious: Yes (Life-Threatening, Hospitalization, Disabling, Other)
  Sender: FDA-Public Use
  Company Number: None

PATIENT
  Sex: Male
  Weight: 71.6683 kg

DRUGS (2)
  1. AMIODARONE HYDROCHLORIDE [Suspect]
     Indication: CARDIAC DISORDER
     Dosage: 200 MG 1 TAB DAILY MFR - SANDOZ PROBLEMS STARTED 10/2009
     Dates: start: 20080501, end: 20090502
  2. AMIODARONE HYDROCHLORIDE [Suspect]
     Indication: CARDIAC PACEMAKER INSERTION
     Dosage: 200 MG 1 TAB DAILY MFR - SANDOZ PROBLEMS STARTED 10/2009
     Dates: start: 20080501, end: 20090502

REACTIONS (10)
  - AMNESIA [None]
  - ASTHENIA [None]
  - CEREBRAL THROMBOSIS [None]
  - FALL [None]
  - HEAD INJURY [None]
  - HYPERTHYROIDISM [None]
  - INCORRECT DRUG ADMINISTRATION DURATION [None]
  - MENTAL IMPAIRMENT [None]
  - PULMONARY FIBROSIS [None]
  - WEIGHT DECREASED [None]
